FAERS Safety Report 25483690 (Version 3)
Quarter: 2025Q4

REPORT INFORMATION
  Report Type: Report from Study
  Country: US (occurrence: None)
  Receive Date: 20250626
  Receipt Date: 20251222
  Transmission Date: 20260117
  Serious: Yes (Hospitalization, Other)
  Sender: UCB
  Company Number: US-UCBSA-2024063105

PATIENT
  Age: 20 Year
  Weight: 59 kg

DRUGS (22)
  1. FENFLURAMINE [Suspect]
     Active Substance: FENFLURAMINE
     Indication: Lennox-Gastaut syndrome
     Dosage: 5.9 MILLILITER, 2X/DAY (BID)
  2. FENFLURAMINE [Suspect]
     Active Substance: FENFLURAMINE
     Dosage: 4.9 MILLILITER, 2X/DAY (BID)
  3. FENFLURAMINE [Suspect]
     Active Substance: FENFLURAMINE
     Dosage: 4.9 MILLILITER, 2X/DAY (BID)
  4. KEPPRA [Suspect]
     Active Substance: LEVETIRACETAM
     Indication: Lennox-Gastaut syndrome
     Dosage: 1,000 MG TABLET, 2 TABLETS (2,000 MG TOTAL) BY PER G TUBE ROUTE SEE ADMIN INSTRUCTIONS. 2 IN AM AND 3 IN PM,
  5. KEPPRA [Suspect]
     Active Substance: LEVETIRACETAM
     Indication: Off label use
     Dosage: 1,000 MG TABLET, 3 TABLETS (3,000 MG TOTAL) BY PER G TUBE ROUTE AT BEDTIME., DISP:
  6. XCOPRI [Concomitant]
     Active Substance: CENOBAMATE
     Indication: Lennox-Gastaut syndrome
     Dosage: 50 MG TAB TABLET, 2 TABLETS (100 MG TOTAL) BY PER G TUBE ROUTE NIGHTLY., DISP: 60 TABLET
  7. ONFI [Concomitant]
     Active Substance: CLOBAZAM
     Indication: Lennox-Gastaut syndrome
     Dosage: 10 MG TABLET, TAKE 3 TABLETS (30 MG TOTAL) BY MOUTH 2 TIMES A DAY.,
  8. EPIDIOLEX [Concomitant]
     Active Substance: CANNABIDIOL
     Indication: Lennox-Gastaut syndrome
     Dosage: 100 MG/ML ORAL SOLUTION, 4 MLS (400 MG TOTAL} BY PER G TUBE ROUTE 2 TIMES A DAY. TAKE 7 ML BY MOUTH TWICE DAILY MAX DAILY AMOUNT: 800 MG
  9. ZTALMY [Concomitant]
     Active Substance: GANAXOLONE
     Indication: Lennox-Gastaut syndrome
     Dosage: 12 MLS BY PER G TUBE ROUTE 3 TIMES A DAY
  10. VAL TOCO [Concomitant]
     Indication: Seizure cluster
     Dosage: 20 MG/2 SPRAY (1 0MG/0.1 ML X2) SPRY, 20 MG BY NASAL ROUTE AS NEEDED FOR OTHER (FOR SEIZURES LONGER THAN 3 MINUTES OR CLUSTER SEIZURES). 1 SPRAY INTO ONE NOSTRIL AS NEEDED FOR SEIZURES
  11. FLORINEF) [Concomitant]
     Indication: Product used for unknown indication
     Dosage: 0.1 MG TABLET, TAKE 1/2 TABLET(0.05 MG) BY MOUTH TWICE DAILY, DISP: 30 TABLET, RFL: 6
  12. NEXIUM I.V. [Concomitant]
     Active Substance: ESOMEPRAZOLE SODIUM
     Indication: Product used for unknown indication
     Dosage: 40 MG DELAYED RELEASE CAPSULE, 1 CAPSULE (40 MG TOTAL) BY PER G TUBE ROUTE DAILY BEFORE BREAKFAST.,
  13. ZOLOFT [Concomitant]
     Active Substance: SERTRALINE HYDROCHLORIDE
     Indication: Product used for unknown indication
     Dosage: 25 MG TABLET, 1 TABLET (25 MG TOTAL) BY PER G TUBE ROUTE DAILY.,
  14. OXYCODONE HYDROCHLORIDE [Concomitant]
     Active Substance: OXYCODONE HYDROCHLORIDE
     Indication: Product used for unknown indication
     Dosage: 5 MG IMMEDIATE RELEASE TABLET, 1 TABLET (5 MG TOTAL) BY PER G TUBE ROUTE EVERY 6 HOURS AS NEEDED.
  15. LOVENOX [Concomitant]
     Active Substance: ENOXAPARIN SODIUM
     Indication: Product used for unknown indication
     Dosage: 40 MG/0.4 ML INJECTION, INJECT 40 MG INTO THE SKIN EVERY 24 HOURS.
  16. MIRALAX [Concomitant]
     Active Substance: POLYETHYLENE GLYCOL 3350
     Indication: Constipation
     Dosage: 17 GRAM PACKET, 17 G BY PER G TUBE ROUTE DAILY AS NEEDED FOR
  17. DUONEB [Concomitant]
     Active Substance: ALBUTEROL SULFATE\IPRATROPIUM BROMIDE
     Indication: Wheezing
     Dosage: 0.5 MG-3 MG(2.5 MG BASE)/3 ML NEBULIZER SOLUTION, TAKE 3 MLS BY NEBULIZATION EVERY 6 HOURS AS NEEDED FOR WHEEZING.,
  18. FERROUS SULFATE [Concomitant]
     Active Substance: FERROUS SULFATE
     Indication: Product used for unknown indication
     Dosage: 300 MG (60 MG IRON)/5 ML SYRUP, 5 MLS (300 MG TOTAL) BY PER G TUBE ROUTE DAILY
  19. PROAMATINE [Concomitant]
     Active Substance: MIDODRINE HYDROCHLORIDE
     Indication: Product used for unknown indication
     Dosage: 5 MG TABLET, 1 TABLET (5 MG TOTAL) BY PER G TUBE ROUTE 2 TIMES DAILY WITH MEALS.
  20. PEPTIDE FORMULA [Concomitant]
     Indication: Product used for unknown indication
     Dosage: 1.5 0.07 GRAM-1.5 KCAL/ML LIQD, 1 CAN BY PER G TUBE ROUTE 3 TIMES A DAY.
  21. COLACE [Concomitant]
     Active Substance: DOCUSATE SODIUM
     Indication: Constipation
     Dosage: 0 MG/5 ML LIQUID, 5 MLS (50 MG TOTAL) BY PER G TUBE ROUTE 2 TIMES DAILY AS NEEDED FOR CONSTIPATION (CONSTIPATION). (PATIENT TAKING DIFFERENTLY: 10 MLS (100 MG TOTAL) BY PER G TUBE ROUTE DAILY AS NEEDED FOR CONSTIPATION.)
  22. EPIPEN 2-PAK) [Concomitant]
     Indication: Bradycardia
     Dosage: 0.3 MG/0.3 ML INJECTION, INJECT 0.3 MLS INTO THE MUSCLE AS NEEDED (SYMPTOMATIC BRADYCARDIA (HEART RATE LESS THAN 40)).

REACTIONS (9)
  - Pneumonia [Unknown]
  - Seizure [Unknown]
  - Seizure cluster [Not Recovered/Not Resolved]
  - Hospitalisation [Not Recovered/Not Resolved]
  - Oral surgery [Unknown]
  - Tracheostomy [Unknown]
  - Hypernatraemia [Unknown]
  - Wrong technique in product usage process [Unknown]
  - Off label use [Unknown]
